FAERS Safety Report 11294936 (Version 1)
Quarter: 2015Q2

REPORT INFORMATION
  Report Type: Spontaneous
  Country: US (occurrence: None)
  Receive Date: 20150626
  Receipt Date: 20150626
  Transmission Date: 20150821
  Serious: No
  Sender: FDA-Public Use
  Company Number: 1000075156

PATIENT
  Sex: Female

DRUGS (1)
  1. LINZESS [Suspect]
     Active Substance: LINACLOTIDE
     Indication: CONSTIPATION

REACTIONS (6)
  - Abdominal pain [None]
  - Fatigue [None]
  - Depression [None]
  - Intentional product misuse [None]
  - Depressed level of consciousness [None]
  - Anxiety [None]
